FAERS Safety Report 5031772-3 (Version None)
Quarter: 2006Q2

REPORT INFORMATION
  Report Type: 
  Country: None (occurrence: None)
  Receive Date: 20060619
  Receipt Date: 20060607
  Transmission Date: 20061013
  Serious: Yes (Other)
  Sender: FDA-Public Use
  Company Number: 2006-06-0335

PATIENT
  Age: 31 Year
  Sex: Female

DRUGS (4)
  1. AERIUS  (DESLORATADINE) TABLETS [Suspect]
     Indication: HYPERSENSITIVITY
     Dosage: 5 MG QD ORAL
     Route: 048
     Dates: start: 20060606, end: 20060606
  2. LAMOTRIGINE TABLETS [Concomitant]
  3. CARBAMAZEPINE [Concomitant]
  4. LEVETIRACETAM TABLETS [Concomitant]

REACTIONS (2)
  - CONDITION AGGRAVATED [None]
  - CONVULSION [None]
